FAERS Safety Report 7541674-6 (Version None)
Quarter: 2011Q2

REPORT INFORMATION
  Report Type: 
  Country: None (occurrence: None)
  Receive Date: 20110603
  Receipt Date: 20110525
  Transmission Date: 20111010
  Serious: Yes (Hospitalization)
  Sender: FDA-Public Use
  Company Number: CIP11001259

PATIENT
  Age: 56 Year
  Sex: Female
  Weight: 58 kg

DRUGS (1)
  1. ACTONEL [Suspect]
     Indication: OSTEOPENIA
     Dosage: 150 MG ONE DOSE ONLY, ORAL
     Route: 048
     Dates: start: 20110505, end: 20110505

REACTIONS (4)
  - DIARRHOEA [None]
  - DEHYDRATION [None]
  - NAUSEA [None]
  - VOMITING [None]
